FAERS Safety Report 6492673-7 (Version None)
Quarter: 2009Q4

REPORT INFORMATION
  Report Type: 
  Country: None (occurrence: None)
  Receive Date: 20091214
  Receipt Date: 20091202
  Transmission Date: 20100525
  Serious: Yes (Hospitalization)
  Sender: FDA-Public Use
  Company Number: IT-PFIZER INC-2009305490

PATIENT
  Age: 69 Year
  Sex: Male
  Weight: 77 kg

DRUGS (5)
  1. BLINDED *NO SUBJECT DRUG [Suspect]
     Indication: PROSTATE CANCER
     Dosage: 37.5 MG, UNK
     Route: 048
     Dates: start: 20091118, end: 20091201
  2. BLINDED *PLACEBO [Suspect]
     Indication: PROSTATE CANCER
     Dosage: 37.5 MG, UNK
     Route: 048
     Dates: start: 20091118, end: 20091201
  3. BLINDED SUNITINIB MALATE [Suspect]
     Indication: PROSTATE CANCER
     Dosage: 37.5 MG, UNK
     Route: 048
     Dates: start: 20091118, end: 20091201
  4. PREDNISONE [Suspect]
     Indication: PROSTATE CANCER
     Dosage: 10 MG, UNK
     Route: 048
     Dates: start: 20091118, end: 20091201
  5. ZOLEDRONIC ACID [Concomitant]
     Indication: BONE LESION
     Dosage: UNK
     Route: 048
     Dates: start: 20091118

REACTIONS (1)
  - GENERAL PHYSICAL HEALTH DETERIORATION [None]
